FAERS Safety Report 8032719-8 (Version None)
Quarter: 2012Q1

REPORT INFORMATION
  Report Type: 
  Country: None (occurrence: None)
  Receive Date: 20120110
  Receipt Date: 20120103
  Transmission Date: 20120608
  Serious: Yes (Hospitalization)
  Sender: FDA-Public Use
  Company Number: US-BAYER-2011-044948

PATIENT
  Age: 29 Year
  Sex: Female
  Weight: 81.633 kg

DRUGS (6)
  1. YAZ [Suspect]
     Indication: CONTRACEPTION
     Dosage: UNK
     Route: 048
     Dates: start: 20020701, end: 20080901
  2. YASMIN [Suspect]
     Indication: CONTRACEPTION
     Dosage: UNK
     Route: 048
     Dates: start: 20030201, end: 20030801
  3. IBUPROFEN [Concomitant]
     Dosage: UNK
     Dates: start: 19920101
  4. YASMIN [Suspect]
     Dosage: UNK
     Route: 048
     Dates: start: 20050401, end: 20080301
  5. DROSPIRENONE AND ETHINYL ESTRADIOL [Suspect]
     Indication: CONTRACEPTION
     Dosage: UNK
     Route: 048
     Dates: start: 20080801, end: 20091101
  6. VITAMIN C [Concomitant]
     Dosage: UNK
     Dates: start: 19740101

REACTIONS (5)
  - PAIN [None]
  - GENERAL PHYSICAL HEALTH DETERIORATION [None]
  - ANXIETY [None]
  - EMOTIONAL DISTRESS [None]
  - CHOLECYSTITIS CHRONIC [None]
